FAERS Safety Report 21232664 (Version 1)
Quarter: 2022Q3

REPORT INFORMATION
  Report Type: Report from Study
  Country: TW (occurrence: TW)
  Receive Date: 20220819
  Receipt Date: 20220819
  Transmission Date: 20221027
  Serious: Yes (Hospitalization, Other)
  Sender: FDA-Public Use
  Company Number: TW-TAKEDA-TW202026320

PATIENT
  Sex: Male

DRUGS (74)
  1. IDURSULFASE [Suspect]
     Active Substance: IDURSULFASE
     Indication: Mucopolysaccharidosis II
     Dosage: UNK
     Route: 042
     Dates: start: 20090622
  2. IDURSULFASE [Suspect]
     Active Substance: IDURSULFASE
     Dosage: 0.5 MILLIGRAM/KILOGRAM, 1X/WEEK
     Route: 042
     Dates: start: 20090810
  3. IDURSULFASE [Suspect]
     Active Substance: IDURSULFASE
     Dosage: 0.55 MILLIGRAM/KILOGRAM, 1/WEEK
     Route: 042
     Dates: start: 20220730
  4. CARBINOXAMINE PSE [Concomitant]
     Indication: Respiratory disorder
     Dosage: UNK
     Route: 048
     Dates: start: 20090210, end: 20100210
  5. CARBINOXAMINE PSE [Concomitant]
     Dosage: UNK
     Route: 048
     Dates: start: 20090817, end: 20100111
  6. BETAMETHASONE [Concomitant]
     Active Substance: BETAMETHASONE
     Indication: Pain
     Dosage: UNK
     Route: 048
     Dates: start: 20090817, end: 20100108
  7. BETAMETHASONE [Concomitant]
     Active Substance: BETAMETHASONE
     Dosage: UNK
     Route: 048
     Dates: start: 20100218, end: 20100225
  8. Mebhydroline [Concomitant]
     Indication: Respiratory disorder
     Dosage: UNK
     Route: 048
     Dates: start: 20090817, end: 20090821
  9. ACETYLCYSTEINE [Concomitant]
     Active Substance: ACETYLCYSTEINE
     Indication: Respiratory disorder
     Dosage: UNK
     Route: 048
     Dates: start: 20090817, end: 20100210
  10. ACETYLCYSTEINE [Concomitant]
     Active Substance: ACETYLCYSTEINE
     Dosage: UNK
     Route: 048
     Dates: start: 20100218, end: 20100225
  11. ACETYLCYSTEINE [Concomitant]
     Active Substance: ACETYLCYSTEINE
     Dosage: UNK
     Route: 048
     Dates: start: 20101120, end: 20101126
  12. ACETYLCYSTEINE [Concomitant]
     Active Substance: ACETYLCYSTEINE
     Dosage: UNK
     Route: 048
     Dates: start: 20101218, end: 20101224
  13. PLATYCODON GRANDIFLORUS WHOLE [Concomitant]
     Active Substance: PLATYCODON GRANDIFLORUS WHOLE
     Indication: Respiratory disorder
     Dosage: UNK
     Route: 048
     Dates: start: 20090817, end: 20100210
  14. PROCATEROL HYDROCHLORIDE [Concomitant]
     Active Substance: PROCATEROL HYDROCHLORIDE
     Indication: Respiratory disorder
     Dosage: UNK
     Route: 048
     Dates: start: 20090817, end: 20100108
  15. PROCATEROL HYDROCHLORIDE [Concomitant]
     Active Substance: PROCATEROL HYDROCHLORIDE
     Dosage: UNK
     Route: 048
     Dates: start: 20100218, end: 20100225
  16. THEOPHYLLINE [Concomitant]
     Active Substance: THEOPHYLLINE
     Indication: Respiratory disorder
     Dosage: UNK
     Route: 048
     Dates: start: 20090817, end: 20100111
  17. ALDIOXA [Concomitant]
     Active Substance: ALDIOXA
     Indication: Gastrointestinal disorder
     Dosage: UNK
     Route: 048
     Dates: start: 20090821, end: 20090826
  18. AZITHROMYCIN [Concomitant]
     Active Substance: AZITHROMYCIN
     Indication: Infection
     Dosage: UNK
     Route: 048
     Dates: start: 20090821, end: 20100101
  19. CYPROHEPTADINE [Concomitant]
     Active Substance: CYPROHEPTADINE
     Indication: Respiratory disorder
     Dosage: UNK
     Route: 048
     Dates: start: 20091002, end: 20100210
  20. CYPROHEPTADINE [Concomitant]
     Active Substance: CYPROHEPTADINE
     Dosage: UNK
     Route: 048
     Dates: start: 20100204, end: 20100210
  21. CYPROHEPTADINE [Concomitant]
     Active Substance: CYPROHEPTADINE
     Dosage: UNK
     Route: 048
     Dates: start: 20100925, end: 20101001
  22. CYPROHEPTADINE [Concomitant]
     Active Substance: CYPROHEPTADINE
     Dosage: UNK
     Route: 048
     Dates: start: 20101204, end: 20101206
  23. COUGH MIXTURE A [Concomitant]
     Indication: Chronic obstructive pulmonary disease
     Dosage: UNK
     Route: 048
     Dates: start: 20100218, end: 20100225
  24. COUGH MIXTURE A [Concomitant]
     Dosage: UNK
     Route: 048
     Dates: start: 20101120, end: 20101126
  25. COUGH MIXTURE A [Concomitant]
     Dosage: UNK
     Route: 048
     Dates: start: 20110118, end: 20110218
  26. CARBINOXAMINE [Concomitant]
     Active Substance: CARBINOXAMINE
     Dosage: UNK
     Route: 048
     Dates: start: 20100506, end: 20100510
  27. PROCATEROL HYDROCHLORIDE [Concomitant]
     Active Substance: PROCATEROL HYDROCHLORIDE
     Indication: Respiratory disorder
     Dosage: UNK
     Route: 048
     Dates: start: 20100925, end: 20100926
  28. PROCATEROL HYDROCHLORIDE [Concomitant]
     Active Substance: PROCATEROL HYDROCHLORIDE
     Dosage: UNK
     Route: 048
     Dates: start: 20101106, end: 20111111
  29. PROCATEROL HYDROCHLORIDE [Concomitant]
     Active Substance: PROCATEROL HYDROCHLORIDE
     Dosage: UNK
     Route: 048
     Dates: start: 20101218, end: 20101224
  30. NASCO [Concomitant]
     Indication: Respiratory disorder
     Dosage: UNK
     Route: 048
     Dates: start: 20100925, end: 20101001
  31. NASCO [Concomitant]
     Dosage: UNK
     Route: 048
     Dates: start: 20101106, end: 20101112
  32. NASCO [Concomitant]
     Dosage: UNK
     Route: 048
     Dates: start: 20110118, end: 20110121
  33. PANADOL [Concomitant]
     Active Substance: ACETAMINOPHEN
     Indication: Analgesic therapy
     Dosage: UNK
     Route: 048
     Dates: start: 20100925, end: 20100925
  34. Peace [Concomitant]
     Indication: Respiratory disorder
     Dosage: UNK
     Route: 048
     Dates: start: 20101030, end: 20101101
  35. Peace [Concomitant]
     Dosage: UNK
     Route: 048
     Dates: start: 20101128, end: 20101130
  36. INROLIN [Concomitant]
     Indication: Respiratory disorder
     Dosage: UNK
     Route: 048
     Dates: start: 20101218, end: 20101224
  37. INROLIN [Concomitant]
     Dosage: UNK
     Route: 048
     Dates: start: 20110118, end: 20110128
  38. Showmin [Concomitant]
     Indication: Respiratory disorder
     Dosage: UNK
     Route: 048
     Dates: start: 20110219, end: 20110224
  39. AUGMENTIN [Concomitant]
     Active Substance: AMOXICILLIN\CLAVULANATE POTASSIUM
     Indication: Respiratory disorder
     Dosage: UNK
     Route: 048
     Dates: start: 20110226, end: 20110226
  40. BEROTEC [Concomitant]
     Active Substance: FENOTEROL HYDROBROMIDE
     Indication: Respiratory disorder
     Dosage: UNK
     Route: 048
     Dates: start: 20110326, end: 20110401
  41. VOLTAREN [Concomitant]
     Active Substance: DICLOFENAC SODIUM
     Indication: Respiratory disorder
     Dosage: UNK
     Route: 048
     Dates: start: 20110326, end: 20110401
  42. DIMETHICONE [Concomitant]
     Active Substance: DIMETHICONE
     Indication: Gastrointestinal disorder
     Dosage: UNK
     Route: 048
     Dates: start: 20110424, end: 20110426
  43. BIFIDOBACTERIUM SPP. [Concomitant]
     Active Substance: BIFIDOBACTERIUM SPP.
     Indication: Gastrointestinal disorder
     Dosage: UNK
     Route: 048
     Dates: start: 20110424, end: 20110426
  44. PECOLIN [Concomitant]
     Indication: Gastrointestinal disorder
     Dosage: UNK
     Route: 048
     Dates: start: 20110424, end: 20110426
  45. ENZDASE [Concomitant]
     Indication: Gastrointestinal disorder
     Dosage: UNK
     Route: 048
     Dates: start: 20110508, end: 20110510
  46. TINTEN [Concomitant]
     Indication: Pain
     Dosage: UNK
     Route: 048
     Dates: start: 20110508, end: 20110510
  47. ACETAMINOPHEN [Concomitant]
     Active Substance: ACETAMINOPHEN
     Indication: Pain
     Dosage: UNK
     Route: 048
     Dates: start: 20110904, end: 20110906
  48. CYPROMIN [Concomitant]
     Indication: Respiratory disorder
     Dosage: UNK
     Route: 048
     Dates: start: 20110904, end: 20110906
  49. FENOTEROL [Concomitant]
     Active Substance: FENOTEROL
     Indication: Respiratory disorder
     Dosage: UNK
     Route: 048
     Dates: start: 20110904, end: 20110906
  50. PERIACTIN [Concomitant]
     Active Substance: CYPROHEPTADINE HYDROCHLORIDE
     Indication: Respiratory disorder
     Dosage: UNK
     Route: 048
     Dates: start: 20111106, end: 20111110
  51. ALUMINIUM DIHYDROXYALLANTOINATE [Concomitant]
     Indication: Gastrointestinal disorder
     Dosage: UNK
     Route: 048
     Dates: start: 20120108, end: 20120124
  52. ERYTHROMYCIN [Concomitant]
     Active Substance: ERYTHROMYCIN
     Indication: Infection
     Dosage: UNK
     Route: 048
     Dates: start: 20120108, end: 20120114
  53. BISMUTH SUBCARBONATE [Concomitant]
     Active Substance: BISMUTH SUBCARBONATE
     Indication: Gastrointestinal disorder
     Dosage: UNK
     Route: 048
     Dates: start: 20120122, end: 20120224
  54. SERRAPEPTASE [Concomitant]
     Active Substance: SERRAPEPTASE
     Indication: Infection
     Dosage: UNK
     Route: 048
     Dates: start: 20120205, end: 20120211
  55. PILIAN [Concomitant]
     Indication: Respiratory disorder
     Dosage: UNK
     Route: 048
     Dates: start: 20121202, end: 20121217
  56. CODEINE PHOSPHATE [Concomitant]
     Active Substance: CODEINE PHOSPHATE
     Indication: Obstructive airways disorder
     Dosage: UNK
     Route: 048
     Dates: start: 20130312, end: 20130406
  57. KAOPECTIN [Concomitant]
     Indication: Diarrhoea
     Dosage: UNK
     Route: 048
     Dates: start: 20130331, end: 20130406
  58. FLUIMUCIL [Concomitant]
     Active Substance: ACETYLCYSTEINE
     Dosage: UNK
     Route: 048
     Dates: start: 20130331, end: 20130406
  59. PILOCARPINE HYDROCHLORIDE [Concomitant]
     Active Substance: PILOCARPINE HYDROCHLORIDE
     Indication: Infection
     Dosage: UNK
     Route: 061
     Dates: start: 20130628, end: 20130708
  60. DIHYDROXYALUMINIUM SODIUM CARBONATE [Concomitant]
     Dosage: UNK
     Route: 048
     Dates: start: 20130630, end: 20130701
  61. TRIAMCINOLONE [Concomitant]
     Active Substance: TRIAMCINOLONE
     Indication: Inflammation
     Dosage: UNK
     Route: 061
     Dates: start: 20140907, end: 20140913
  62. DOMPERIDONE [Concomitant]
     Active Substance: DOMPERIDONE
     Indication: Nausea
     Dosage: UNK
     Route: 042
     Dates: start: 20150801
  63. DEXTROMETHORPHAN [Concomitant]
     Active Substance: DEXTROMETHORPHAN
     Indication: Cough
     Dosage: UNK
     Route: 048
     Dates: start: 20151108
  64. DICLOFENAC [Concomitant]
     Active Substance: DICLOFENAC
     Indication: Urinary tract infection
     Dosage: UNK
     Route: 048
     Dates: start: 20160515, end: 20160516
  65. TERBUTALINE SULFATE [Concomitant]
     Active Substance: TERBUTALINE SULFATE
     Indication: Asthma
     Dosage: UNK
     Route: 055
     Dates: start: 20170603
  66. VANCOMYCIN [Concomitant]
     Active Substance: VANCOMYCIN
     Indication: Staphylococcal infection
     Dosage: UNK
     Dates: start: 20200605
  67. NEOSTIGMINE METHYLSULFATE [Concomitant]
     Active Substance: NEOSTIGMINE METHYLSULFATE
     Indication: Ophthalmoplegia
     Dosage: UNK
     Route: 061
     Dates: start: 20171129
  68. SINQUART [Concomitant]
     Indication: Antifungal treatment
     Dosage: UNK
     Route: 061
     Dates: start: 20180512, end: 20180512
  69. BIFIDOBACTERIUM BIFIDUM [Concomitant]
     Active Substance: BIFIDOBACTERIUM BIFIDUM
     Dosage: UNK
     Route: 048
     Dates: start: 20180707
  70. RINDERON V [Concomitant]
     Active Substance: BETAMETHASONE VALERATE
     Indication: Antiinflammatory therapy
     Dosage: UNK
     Route: 061
     Dates: start: 20181103
  71. NEOSTIGMINE METHYLSULFATE [Concomitant]
     Active Substance: NEOSTIGMINE METHYLSULFATE
     Indication: Ophthalmoplegia
     Dosage: UNK
     Route: 061
     Dates: start: 20181211
  72. CABIDRIN [Concomitant]
     Indication: Rhinitis allergic
     Dosage: UNK
     Route: 048
     Dates: start: 20190120, end: 20190122
  73. TIPEPIDINE HIBENZATE [Concomitant]
     Active Substance: TIPEPIDINE HIBENZATE
     Indication: Cough
     Dosage: UNK
     Route: 048
     Dates: start: 20191004, end: 20191006
  74. ENTECAVIR [Concomitant]
     Active Substance: ENTECAVIR
     Indication: Antasthmatic drug level
     Dosage: UNK
     Route: 048
     Dates: start: 20191004, end: 20191006

REACTIONS (2)
  - Pneumonia [Recovered/Resolved]
  - Mycoplasma infection [Recovered/Resolved]

NARRATIVE: CASE EVENT DATE: 20110114
